FAERS Safety Report 5089264-1 (Version None)
Quarter: 2006Q3

REPORT INFORMATION
  Report Type: 
  Country: None (occurrence: None)
  Receive Date: 20060727
  Receipt Date: 20060602
  Transmission Date: 20061208
  Serious: Yes (Other)
  Sender: FDA-Public Use
  Company Number: 2006071652

PATIENT
  Age: 66 Year
  Sex: Female
  Weight: 82.3279 kg

DRUGS (6)
  1. LYRICA [Suspect]
     Indication: DIABETIC NEUROPATHY
     Dosage: (2 IN 1 D),
  2. PRAVACHOL [Concomitant]
  3. INSULIN (INSULIN) [Concomitant]
  4. CLONIDINE [Concomitant]
  5. ASPIRIN [Concomitant]
  6. CENTRUM (MINERALS NOS, VITAMINS NOS) [Concomitant]

REACTIONS (3)
  - BLOOD GLUCOSE INCREASED [None]
  - DRUG INEFFECTIVE [None]
  - WEIGHT INCREASED [None]
